FAERS Safety Report 8559529-7 (Version None)
Quarter: 2012Q3

REPORT INFORMATION
  Report Type: 
  Country: None (occurrence: None)
  Receive Date: 20120802
  Receipt Date: 20120725
  Transmission Date: 20120928
  Serious: Yes (Hospitalization)
  Sender: FDA-Public Use
  Company Number: US-BAYER-2012-014750

PATIENT
  Age: 18 Year
  Sex: Female
  Weight: 58.957 kg

DRUGS (6)
  1. CITALOPRAM HYDROBROMIDE [Concomitant]
     Dosage: 10 MG, UNK
     Route: 048
     Dates: start: 20091110
  2. ASPIRIN [Concomitant]
  3. STATIN [Concomitant]
  4. FLONASE [Concomitant]
     Indication: MULTIPLE ALLERGIES
     Dosage: UNK
     Dates: start: 20070101
  5. VALIUM [Concomitant]
     Indication: IRRITABLE BOWEL SYNDROME
     Dosage: ? TABLET
     Route: 048
     Dates: start: 20100112
  6. YAZ [Suspect]
     Indication: CONTRACEPTION
     Dosage: UNK
     Dates: start: 20080101, end: 20100101

REACTIONS (3)
  - TRANSIENT ISCHAEMIC ATTACK [None]
  - CEREBROVASCULAR ACCIDENT [None]
  - PAIN [None]
